FAERS Safety Report 12433460 (Version 3)
Quarter: 2016Q2

REPORT INFORMATION
  Report Type: Report from Study
  Country: ES (occurrence: ES)
  Receive Date: 20160603
  Receipt Date: 20160620
  Transmission Date: 20160815
  Serious: Yes (Hospitalization, Other)
  Sender: FDA-Public Use
  Company Number: PHHY2015ES112644

PATIENT
  Age: 58 Year
  Sex: Male

DRUGS (1)
  1. SANDOSTATIN LAR DEPOT [Suspect]
     Active Substance: OCTREOTIDE ACETATE
     Indication: ACROMEGALY
     Dosage: 10 MG, UNK
     Route: 030
     Dates: start: 20060801

REACTIONS (6)
  - Epistaxis [Recovered/Resolved]
  - Neoplasm progression [Unknown]
  - Rectal haemorrhage [Recovered/Resolved]
  - Neoplasm [Unknown]
  - Pituitary tumour benign [Recovered/Resolved]
  - Venous injury [Unknown]
